FAERS Safety Report 21972305 (Version 1)
Quarter: 2023Q1

REPORT INFORMATION
  Report Type: Spontaneous
  Country: AU (occurrence: AU)
  Receive Date: 20230209
  Receipt Date: 20230209
  Transmission Date: 20230418
  Serious: No
  Sender: FDA-Public Use
  Company Number: AU-009507513-2302AUS002458

PATIENT
  Age: 78 Year
  Sex: Male

DRUGS (1)
  1. LAGEVRIO [Suspect]
     Active Substance: MOLNUPIRAVIR
     Dosage: UNK
     Route: 048
     Dates: start: 20230206

REACTIONS (3)
  - Discomfort [Unknown]
  - Product physical issue [Unknown]
  - Poor quality product administered [Unknown]

NARRATIVE: CASE EVENT DATE: 20230206
